FAERS Safety Report 5419986-1 (Version None)
Quarter: 2007Q3

REPORT INFORMATION
  Report Type: 
  Country: None (occurrence: None)
  Receive Date: 20070815
  Receipt Date: 20070806
  Transmission Date: 20080115
  Serious: Yes (Other)
  Sender: FDA-Public Use
  Company Number: 2007JP003715

PATIENT
  Age: 41 Year
  Sex: Male

DRUGS (1)
  1. PROGRAF [Suspect]
     Indication: CORD BLOOD TRANSPLANT THERAPY

REACTIONS (4)
  - BIOPSY BONE MARROW ABNORMAL [None]
  - CEREBRAL ATROPHY [None]
  - ENCEPHALITIS HERPES [None]
  - HUMAN HERPESVIRUS 6 INFECTION [None]
